FAERS Safety Report 12234154 (Version 1)
Quarter: 2016Q2

REPORT INFORMATION
  Report Type: Spontaneous
  Country: US (occurrence: None)
  Receive Date: 20160401
  Receipt Date: 20160401
  Transmission Date: 20160815
  Serious: Yes (Other)
  Sender: FDA-Public Use
  Company Number: None

PATIENT
  Age: 26 Year
  Sex: Male
  Weight: 68 kg

DRUGS (1)
  1. SUBOXONE [Suspect]
     Active Substance: BUPRENORPHINE HYDROCHLORIDE\NALOXONE HYDROCHLORIDE
     Indication: DRUG DEPENDENCE
     Dosage: 2MG-0.5MG BID SL
     Route: 060
     Dates: start: 20160315

REACTIONS (7)
  - Urticaria [None]
  - Inflammation [None]
  - Vascular injury [None]
  - Immune system disorder [None]
  - Injection site inflammation [None]
  - Eye swelling [None]
  - Injection site exfoliation [None]

NARRATIVE: CASE EVENT DATE: 20160315
